FAERS Safety Report 19320641 (Version 1)
Quarter: 2021Q2

REPORT INFORMATION
  Report Type: Spontaneous
  Country: US (occurrence: US)
  Receive Date: 20210528
  Receipt Date: 20210528
  Transmission Date: 20210717
  Serious: No
  Sender: FDA-Public Use
  Company Number: None

PATIENT
  Age: 77 Year
  Sex: Male

DRUGS (1)
  1. REMDESIVIR (REMDESIVIR (EUA)) [Suspect]
     Active Substance: REMDESIVIR
     Route: 042
     Dates: start: 20201115, end: 20201116

REACTIONS (1)
  - Renal impairment [None]

NARRATIVE: CASE EVENT DATE: 20201117
